FAERS Safety Report 4819423-1 (Version None)
Quarter: 2005Q4

REPORT INFORMATION
  Report Type: 
  Country: None (occurrence: None)
  Receive Date: 20051103
  Receipt Date: 20051021
  Transmission Date: 20060501
  Serious: Yes (Hospitalization, Other)
  Sender: FDA-Public Use
  Company Number: DE-JNJFOC-20050606946

PATIENT
  Age: 30 Year
  Sex: Male

DRUGS (6)
  1. RISPERDAL [Suspect]
     Indication: SCHIZOAFFECTIVE DISORDER
     Route: 048
  2. CLOZAPINE [Suspect]
     Route: 048
  3. LEPONEX [Interacting]
     Route: 048
  4. LEPONEX [Interacting]
     Indication: SCHIZOAFFECTIVE DISORDER
     Route: 048
  5. VALPROATE SODIUM [Concomitant]
     Route: 048
  6. RESONIUM [Concomitant]
     Route: 048

REACTIONS (4)
  - ASPARTATE AMINOTRANSFERASE INCREASED [None]
  - BUNDLE BRANCH BLOCK LEFT [None]
  - DRUG INTERACTION [None]
  - RHABDOMYOLYSIS [None]
